FAERS Safety Report 11816357 (Version 2)
Quarter: 2015Q4

REPORT INFORMATION
  Report Type: Spontaneous
  Country: US (occurrence: US)
  Receive Date: 20151209
  Receipt Date: 20151217
  Transmission Date: 20160305
  Serious: No
  Sender: FDA-Public Use
  Company Number: US-ASTRAZENECA-2015SF20835

PATIENT
  Sex: Male

DRUGS (1)
  1. BRILINTA [Suspect]
     Active Substance: TICAGRELOR
     Indication: ACUTE CORONARY SYNDROME
     Route: 048
     Dates: start: 201511

REACTIONS (7)
  - Dizziness [Recovering/Resolving]
  - Asthenia [Unknown]
  - Vision blurred [Recovering/Resolving]
  - Malaise [Unknown]
  - Abdominal discomfort [Unknown]
  - Mental impairment [Unknown]
  - Memory impairment [Unknown]
